FAERS Safety Report 4690925-4 (Version None)
Quarter: 2005Q2

REPORT INFORMATION
  Report Type: 
  Country: None (occurrence: None)
  Receive Date: 20050615
  Receipt Date: 20050304
  Transmission Date: 20051028
  Serious: Yes (Other)
  Sender: FDA-Public Use
  Company Number: JP-ROCHE-398249

PATIENT
  Age: 61 Year
  Sex: Female
  Weight: 46.4 kg

DRUGS (16)
  1. TAMIFLU [Suspect]
     Route: 048
     Dates: start: 20050216, end: 20050220
  2. DIGOSIN [Concomitant]
     Dates: end: 20041129
  3. INDERAL [Concomitant]
     Dates: end: 20041129
  4. CARVEDILOL [Concomitant]
     Route: 048
     Dates: start: 20041129
  5. VERAPAMIL [Concomitant]
     Indication: BRADYCARDIA
     Route: 048
     Dates: start: 20041213
  6. PL [Concomitant]
     Route: 048
     Dates: start: 20050215, end: 20050219
  7. VOLTAREN [Concomitant]
     Route: 054
     Dates: start: 20050215, end: 20050215
  8. WARFARIN SODIUM [Concomitant]
     Route: 048
  9. BUFFERIN [Concomitant]
     Route: 048
  10. LASIX [Concomitant]
     Route: 048
  11. ZYLORIC [Concomitant]
     Route: 048
  12. SOLDEM [Concomitant]
     Dates: start: 20050222, end: 20050222
  13. ENSURE [Concomitant]
     Dosage: FORM: ORAL (NOS).
     Route: 048
     Dates: start: 20050222
  14. PRIMPERAN INJ [Concomitant]
     Dates: start: 20050222
  15. UNSPECIFIED DRUG [Concomitant]
     Dosage: PROVIDED AS BITSAN
     Dates: start: 20050222
  16. TAKEPRON [Concomitant]
     Dates: start: 20050222

REACTIONS (15)
  - ABASIA [None]
  - ANAEMIA [None]
  - ANOREXIA [None]
  - ASTHENIA [None]
  - BLOOD UREA INCREASED [None]
  - CEREBRAL INFARCTION [None]
  - DEHYDRATION [None]
  - GASTRIC HAEMORRHAGE [None]
  - GASTRITIS EROSIVE [None]
  - GASTRITIS HAEMORRHAGIC [None]
  - GASTROINTESTINAL HAEMORRHAGE [None]
  - HYPERTROPHIC CARDIOMYOPATHY [None]
  - MALAISE [None]
  - MELAENA [None]
  - NAUSEA [None]
